FAERS Safety Report 19873303 (Version 1)
Quarter: 2021Q3

REPORT INFORMATION
  Report Type: Report from Study
  Country: None (occurrence: US)
  Receive Date: 20210923
  Receipt Date: 20210923
  Transmission Date: 20211014
  Serious: Yes (Other)
  Sender: FDA-Public Use
  Company Number: US-ABBVIE-21K-163-4020833-00

PATIENT
  Age: 40 Year
  Sex: Female

DRUGS (1)
  1. HUMIRA [Suspect]
     Active Substance: ADALIMUMAB
     Indication: RHEUMATOID ARTHRITIS
     Route: 058
     Dates: end: 20210909

REACTIONS (12)
  - Gait disturbance [Unknown]
  - Mobility decreased [Unknown]
  - Maternal exposure during pregnancy [Unknown]
  - Contusion [Not Recovered/Not Resolved]
  - Pain in extremity [Unknown]
  - Therapeutic procedure [Unknown]
  - Peripheral swelling [Unknown]
  - Joint injury [Not Recovered/Not Resolved]
  - Road traffic accident [Unknown]
  - Joint swelling [Unknown]
  - Abortion spontaneous [Unknown]
  - Hand fracture [Not Recovered/Not Resolved]

NARRATIVE: CASE EVENT DATE: 2021
